FAERS Safety Report 4590546-8 (Version None)
Quarter: 2005Q1

REPORT INFORMATION
  Report Type: 
  Country: None (occurrence: None)
  Receive Date: 20050215
  Receipt Date: 20050209
  Transmission Date: 20050727
  Serious: Yes (Hospitalization)
  Sender: FDA-Public Use
  Company Number: 200510033BCA

PATIENT
  Age: 50 Year
  Sex: Male

DRUGS (3)
  1. GAMUNEX [Suspect]
     Dosage: INTRAVENOUS
     Route: 042
     Dates: start: 20041125
  2. GAMUNEX [Suspect]
     Dosage: INTRAVENOUS
     Route: 042
     Dates: start: 20041125
  3. GAMUNEX [Suspect]
     Dosage: 80 G, TOTAL DAILY, INTRAVENOUS
     Route: 042
     Dates: start: 20041126

REACTIONS (1)
  - MENINGITIS ASEPTIC [None]
